FAERS Safety Report 6047753-7 (Version None)
Quarter: 2009Q1

REPORT INFORMATION
  Report Type: 
  Country: None (occurrence: None)
  Receive Date: 20090123
  Receipt Date: 20090113
  Transmission Date: 20090719
  Serious: Yes (Other)
  Sender: FDA-Public Use
  Company Number: US-JNJFOC-20081200135

PATIENT
  Sex: Female
  Weight: 61.69 kg

DRUGS (6)
  1. REMICADE [Suspect]
     Route: 042
  2. REMICADE [Suspect]
     Indication: SYSTEMIC LUPUS ERYTHEMATOSUS
     Route: 042
  3. REMICADE [Suspect]
     Indication: RHEUMATOID ARTHRITIS
     Dosage: RECEIVED 3 DOSES
     Route: 042
  4. PREDNISONE [Concomitant]
  5. IMURAN [Concomitant]
  6. FORTEO [Concomitant]

REACTIONS (6)
  - APHASIA [None]
  - BACK PAIN [None]
  - CYANOSIS [None]
  - DYSPNOEA [None]
  - IMMOBILE [None]
  - INFUSION RELATED REACTION [None]
